FAERS Safety Report 17682118 (Version 4)
Quarter: 2022Q1

REPORT INFORMATION
  Report Type: Report from Study
  Country: US (occurrence: US)
  Receive Date: 20200418
  Receipt Date: 20220110
  Transmission Date: 20220423
  Serious: Yes (Life-Threatening, Hospitalization, Other)
  Sender: FDA-Public Use
  Company Number: US-AUROBINDO-AUR-APL-2020-017855

PATIENT
  Age: 55 Year
  Sex: Female
  Weight: 60.33 kg

DRUGS (1)
  1. BELINOSTAT [Suspect]
     Active Substance: BELINOSTAT
     Indication: Peripheral T-cell lymphoma unspecified
     Dosage: 1560 MILLIGRAM, ONCE A DAY Q3 WKS
     Route: 042
     Dates: start: 20200127, end: 20200406

REACTIONS (11)
  - Respiratory failure [Recovered/Resolved]
  - Pneumonia [Unknown]
  - Hyponatraemia [Unknown]
  - Nausea [Recovered/Resolved]
  - Vomiting [Recovered/Resolved]
  - Headache [Unknown]
  - Dyspnoea [Unknown]
  - Pain [Unknown]
  - Back pain [Unknown]
  - Pleural effusion [Unknown]
  - Supraventricular tachycardia [Unknown]

NARRATIVE: CASE EVENT DATE: 20191202
